FAERS Safety Report 20106371 (Version 2)
Quarter: 2021Q4

REPORT INFORMATION
  Report Type: Report from Study
  Country: DO (occurrence: DO)
  Receive Date: 20211124
  Receipt Date: 20211214
  Transmission Date: 20220303
  Serious: No
  Sender: FDA-Public Use
  Company Number: DO-NOVARTISPH-NVSC2021DO267258

PATIENT
  Sex: Female
  Weight: 68 kg

DRUGS (4)
  1. DIOVAN [Suspect]
     Active Substance: VALSARTAN
     Indication: Hypertension
     Dosage: 160 MG
     Route: 065
     Dates: start: 2005, end: 2007
  2. DIOVAN [Suspect]
     Active Substance: VALSARTAN
     Dosage: 80 MG
     Route: 065
     Dates: start: 2007
  3. PLAVIX [Concomitant]
     Active Substance: CLOPIDOGREL BISULFATE
     Indication: Blood disorder
     Dosage: 75 MG, QD
     Route: 048
     Dates: start: 2007
  4. BISOPROLOL FUMARATE [Concomitant]
     Active Substance: BISOPROLOL FUMARATE
     Indication: Tachycardia
     Dosage: 2.5 MG, QD
     Route: 048
     Dates: start: 2007

REACTIONS (5)
  - Cardiac disorder [Recovering/Resolving]
  - Hypertension [Unknown]
  - Arterial occlusive disease [Unknown]
  - Blood cholesterol increased [Unknown]
  - Blood calcium increased [Unknown]
